FAERS Safety Report 13910719 (Version 1)
Quarter: 2017Q3

REPORT INFORMATION
  Report Type: Spontaneous
  Country: US (occurrence: None)
  Receive Date: 20170822
  Receipt Date: 20170822
  Transmission Date: 20171127
  Serious: No
  Sender: FDA-Public Use
  Company Number: None

PATIENT
  Age: 51 Year
  Sex: Male

DRUGS (1)
  1. ZEPATIER [Suspect]
     Active Substance: ELBASVIR\GRAZOPREVIR
     Indication: HEPATITIS C
     Dosage: 50/100MG QD PO
     Route: 048
     Dates: start: 20170730

REACTIONS (3)
  - Fatigue [None]
  - Nausea [None]
  - Headache [None]

NARRATIVE: CASE EVENT DATE: 20170816
